FAERS Safety Report 10191165 (Version 3)
Quarter: 2014Q2

REPORT INFORMATION
  Report Type: Report from Study
  Country: CL (occurrence: CL)
  Receive Date: 20140523
  Receipt Date: 20140527
  Transmission Date: 20141212
  Serious: Yes (Hospitalization, Other)
  Sender: FDA-Public Use
  Company Number: CL-ROCHE-1343669

PATIENT
  Age: 58 Year
  Sex: Female
  Weight: 70 kg

DRUGS (6)
  1. HERCEPTIN [Suspect]
     Indication: BREAST CANCER
     Route: 042
     Dates: start: 20130813, end: 20140204
  2. HERCEPTIN [Suspect]
     Indication: BREAST CANCER
     Dosage: LAST DOSE OF CHEMOTHERAPY  TRASTUZUMAB HALOZYME ON 17/MAR/2014
     Route: 058
     Dates: start: 20140225, end: 20140407
  3. SERTRALINE [Concomitant]
     Indication: DEPRESSION
     Route: 048
     Dates: start: 2008
  4. CLONAZEPAM [Concomitant]
     Indication: DEPRESSION
     Route: 048
     Dates: start: 2008
  5. DIPYRONE [Concomitant]
     Indication: BONE PAIN
     Route: 048
     Dates: start: 2012
  6. TRAMADOL [Concomitant]
     Indication: BONE PAIN
     Route: 048
     Dates: start: 2012

REACTIONS (7)
  - Dyspnoea [Not Recovered/Not Resolved]
  - Swelling [Not Recovered/Not Resolved]
  - Lung disorder [Not Recovered/Not Resolved]
  - Cardiac disorder [Not Recovered/Not Resolved]
  - Fatigue [Not Recovered/Not Resolved]
  - Cardiomegaly [Not Recovered/Not Resolved]
  - Vasodilatation [Not Recovered/Not Resolved]
